FAERS Safety Report 4641512-5 (Version None)
Quarter: 2005Q2

REPORT INFORMATION
  Report Type: 
  Country: None (occurrence: None)
  Receive Date: 20050421
  Receipt Date: 20050207
  Transmission Date: 20051028
  Serious: Yes (Life-Threatening)
  Sender: FDA-Public Use
  Company Number: DE-GLAXOSMITHKLINE-D0045828A

PATIENT
  Age: 69 Year
  Sex: Male
  Weight: 72 kg

DRUGS (5)
  1. AVODART [Suspect]
     Indication: PROSTATIC ADENOMA
     Dosage: .5MG PER DAY
     Route: 048
     Dates: start: 20031204, end: 20041217
  2. ASPIRIN [Concomitant]
     Indication: PROPHYLAXIS
     Dosage: 100MG PER DAY
     Route: 048
     Dates: start: 19970101
  3. BAYOTENSIN [Concomitant]
     Indication: HYPERTENSION
     Dosage: 20MG PER DAY
     Route: 048
     Dates: start: 19970101
  4. CONCOR 5 [Concomitant]
     Indication: HYPERTENSION
     Dosage: 5MG PER DAY
     Route: 048
     Dates: start: 19970101
  5. PROSCAR [Concomitant]
     Indication: PROSTATIC ADENOMA
     Dosage: 1TAB PER DAY
     Route: 048
     Dates: start: 19990101, end: 20031201

REACTIONS (2)
  - METASTASES TO LYMPH NODES [None]
  - PROSTATE CANCER [None]
